FAERS Safety Report 10166631 (Version 2)
Quarter: 2014Q2

REPORT INFORMATION
  Report Type: Spontaneous
  Country: FR (occurrence: FR)
  Receive Date: 20140512
  Receipt Date: 20140603
  Transmission Date: 20141212
  Serious: Yes (Hospitalization, Other)
  Sender: FDA-Public Use
  Company Number: FR-JNJFOC-20140504314

PATIENT
  Age: 35 Year
  Sex: Female
  Weight: 88 kg

DRUGS (6)
  1. XARELTO [Suspect]
     Indication: EMBOLISM VENOUS
     Route: 048
     Dates: start: 201307, end: 201404
  2. XARELTO [Suspect]
     Indication: EMBOLISM VENOUS
     Route: 048
     Dates: start: 20140415, end: 20140430
  3. XARELTO [Suspect]
     Indication: FACTOR V DEFICIENCY
     Route: 048
     Dates: start: 201307, end: 201404
  4. XARELTO [Suspect]
     Indication: FACTOR V DEFICIENCY
     Route: 048
     Dates: start: 20140415, end: 20140430
  5. XARELTO [Suspect]
     Indication: PULMONARY EMBOLISM
     Route: 048
     Dates: start: 20140415, end: 20140430
  6. XARELTO [Suspect]
     Indication: PULMONARY EMBOLISM
     Route: 048
     Dates: start: 201307, end: 201404

REACTIONS (11)
  - Eschar [Unknown]
  - Vaginal haemorrhage [Unknown]
  - Metrorrhagia [Unknown]
  - Presyncope [Unknown]
  - Haemoglobin decreased [Unknown]
  - Post procedural haemorrhage [Unknown]
  - Pelvic pain [Unknown]
  - Exposure during pregnancy [Unknown]
  - Pallor [Unknown]
  - Chills [Unknown]
  - Nausea [Unknown]
